FAERS Safety Report 4693085-9 (Version None)
Quarter: 2005Q2

REPORT INFORMATION
  Report Type: 
  Country: None (occurrence: None)
  Receive Date: 20050608
  Receipt Date: 20050131
  Transmission Date: 20051028
  Serious: Yes (Other)
  Sender: FDA-Public Use
  Company Number: 394295

PATIENT

DRUGS (3)
  1. ACCUTANE [Suspect]
     Indication: DRUG USE FOR UNKNOWN INDICATION
     Dates: start: 20030801, end: 20031001
  2. ORTHO EVRA (ETHINYL ESTRADIOL/NORELGESTROMIN) [Concomitant]
  3. BIRTH CONTROL PILL (ORAL CONTRACEPTIVE NOS) [Concomitant]

REACTIONS (3)
  - ABORTION INDUCED [None]
  - NO ADVERSE EFFECT [None]
  - PREGNANCY [None]
